FAERS Safety Report 25336151 (Version 1)
Quarter: 2025Q2

REPORT INFORMATION
  Report Type: Report from Study
  Country: BR (occurrence: BR)
  Receive Date: 20250520
  Receipt Date: 20250520
  Transmission Date: 20250717
  Serious: Yes (Other)
  Sender: TAKEDA
  Company Number: BR-TAKEDA-2024TUS113157

PATIENT
  Age: 68 Year
  Sex: Female
  Weight: 74.4 kg

DRUGS (1)
  1. VEDOLIZUMAB [Suspect]
     Active Substance: VEDOLIZUMAB
     Indication: Colitis ulcerative

REACTIONS (11)
  - Pneumonia [Recovering/Resolving]
  - Weight increased [Unknown]
  - Gastrointestinal pain [Unknown]
  - Hepatic steatosis [Unknown]
  - Vitamin D deficiency [Unknown]
  - Blood glucose increased [Unknown]
  - Product availability issue [Unknown]
  - Alanine aminotransferase increased [Unknown]
  - Aspartate aminotransferase increased [Unknown]
  - Abdominal distension [Unknown]
  - Flatulence [Unknown]

NARRATIVE: CASE EVENT DATE: 20250513
